FAERS Safety Report 9234331 (Version 1)
Quarter: 2013Q2

REPORT INFORMATION
  Report Type: Report from Study
  Country: CZ (occurrence: CZ)
  Receive Date: 20130416
  Receipt Date: 20130416
  Transmission Date: 20140414
  Serious: Yes (Hospitalization)
  Sender: FDA-Public Use
  Company Number: CZ-UCBSA-010014

PATIENT
  Age: 49 Year
  Sex: Female
  Weight: 75 kg

DRUGS (10)
  1. CERTOLIZUMAB PEGOL [Suspect]
     Indication: CROHN^S DISEASE
     Dosage: C87085 - 400 MG EVERY TWO WEEKS AT WEEK 0, 2 AND 4
     Route: 058
  2. CERTOLIZUMAB PEGOL [Suspect]
     Indication: CROHN^S DISEASE
     Route: 058
     Dates: start: 20090611, end: 20090708
  3. CERTOLIZUMAB PEGOL [Suspect]
     Indication: CROHN^S DISEASE
     Route: 058
     Dates: start: 20090724, end: 20100308
  4. AZATHIOPRIN [Concomitant]
     Indication: CROHN^S DISEASE
     Route: 048
     Dates: start: 20090220, end: 20100309
  5. PENTASA [Concomitant]
     Indication: CROHN^S DISEASE
     Route: 048
     Dates: start: 200810, end: 20100309
  6. PENTASA [Concomitant]
     Indication: CROHN^S DISEASE
     Route: 048
     Dates: start: 20100408
  7. CIPLOX [Concomitant]
     Indication: CROHN^S DISEASE
     Route: 048
     Dates: start: 20090217, end: 20100309
  8. FOLIC ACID [Concomitant]
     Indication: VITAMIN SUPPLEMENTATION
     Route: 048
     Dates: start: 20080617, end: 20100309
  9. FOLIC ACID [Concomitant]
     Indication: VITAMIN SUPPLEMENTATION
     Route: 048
     Dates: start: 20100408
  10. URSOFALK [Concomitant]
     Indication: HEPATIC ENZYME INCREASED
     Route: 048
     Dates: start: 20090129

REACTIONS (4)
  - Enterocutaneous fistula [Recovered/Resolved]
  - Pleural effusion [Recovered/Resolved]
  - Subdiaphragmatic abscess [Recovered/Resolved]
  - Uterine leiomyoma [Recovered/Resolved]
